FAERS Safety Report 4570116-8 (Version None)
Quarter: 2005Q1

REPORT INFORMATION
  Report Type: 
  Country: None (occurrence: None)
  Receive Date: 20050125
  Receipt Date: 20050125
  Transmission Date: 20050727
  Serious: Yes (Other)
  Sender: FDA-Public Use
  Company Number: None

PATIENT
  Age: 17 Year
  Sex: Male
  Weight: 78.0187 kg

DRUGS (2)
  1. GEODON [Suspect]
     Indication: BIPOLAR DISORDER
     Dosage: 80 MG P.M.
  2. GEODON [Suspect]
     Indication: TRAUMATIC BRAIN INJURY
     Dosage: 80 MG P.M.

REACTIONS (6)
  - ALOPECIA [None]
  - HYPERTENSION [None]
  - LYMPHADENOPATHY [None]
  - POLLAKIURIA [None]
  - RESPIRATORY DISORDER [None]
  - THIRST [None]
